FAERS Safety Report 9745985 (Version 3)
Quarter: 2014Q1

REPORT INFORMATION
  Report Type: Spontaneous
  Country: US (occurrence: US)
  Receive Date: 20131211
  Receipt Date: 20140209
  Transmission Date: 20141002
  Serious: No
  Sender: FDA-Public Use
  Company Number: US-ROXANE LABORATORIES, INC.-2013-RO-01933RO

PATIENT
  Age: 61 Year
  Sex: Male

DRUGS (1)
  1. SODIUM PS [Suspect]
     Indication: PRODUCT USED FOR UNKNOWN INDICATION
     Dosage: 60 ML
     Route: 048

REACTIONS (2)
  - Oral discomfort [Unknown]
  - Product quality issue [Unknown]
